FAERS Safety Report 12264212 (Version 1)
Quarter: 2016Q2

REPORT INFORMATION
  Report Type: Spontaneous
  Country: US (occurrence: US)
  Receive Date: 20160413
  Receipt Date: 20160413
  Transmission Date: 20160815
  Serious: No
  Sender: FDA-Public Use
  Company Number: US-JNJFOC-20160226311

PATIENT
  Age: 58 Year
  Sex: Female
  Weight: 104.33 kg

DRUGS (4)
  1. MENS ROGAINE UNSCENTED FORMULA [Suspect]
     Active Substance: MINOXIDIL
     Route: 061
  2. VITAMIN D [Concomitant]
     Active Substance: CHOLECALCIFEROL
     Indication: ROUTINE HEALTH MAINTENANCE
     Dosage: DAILY
     Route: 065
  3. IRON [Concomitant]
     Active Substance: IRON
     Indication: ROUTINE HEALTH MAINTENANCE
     Dosage: DAILY
     Route: 065
  4. MENS ROGAINE UNSCENTED FORMULA [Suspect]
     Active Substance: MINOXIDIL
     Indication: ALOPECIA
     Dosage: 1/2 CAPFUL
     Route: 061

REACTIONS (7)
  - Medication residue present [Recovered/Resolved]
  - Product use issue [None]
  - Skin burning sensation [Recovered/Resolved]
  - Expired product administered [Unknown]
  - Wrong patient received medication [Recovered/Resolved]
  - Off label use [Recovered/Resolved]
  - Skin irritation [Recovered/Resolved]
